FAERS Safety Report 7764241-8 (Version None)
Quarter: 2011Q3

REPORT INFORMATION
  Report Type: 
  Country: None (occurrence: None)
  Receive Date: 20110921
  Receipt Date: 20110913
  Transmission Date: 20111222
  Serious: Yes (Other)
  Sender: FDA-Public Use
  Company Number: US-ASTELLAS-2011US004614

PATIENT
  Sex: Female

DRUGS (2)
  1. CORTICOSTEROIDS [Suspect]
     Indication: PRODUCT USED FOR UNKNOWN INDICATION
     Dosage: UNK
     Route: 065
  2. ERLOTINIB HYDROCHLORIDE [Suspect]
     Indication: LUNG CARCINOMA CELL TYPE UNSPECIFIED STAGE 0
     Dosage: 100 MG, UID/QD
     Route: 048
     Dates: start: 20110728

REACTIONS (7)
  - FEELING JITTERY [None]
  - EPISTAXIS [None]
  - HOSPICE CARE [None]
  - INSOMNIA [None]
  - RHINORRHOEA [None]
  - BRAIN NEOPLASM [None]
  - IRRITABILITY [None]
